FAERS Safety Report 7432808-2 (Version None)
Quarter: 2011Q2

REPORT INFORMATION
  Report Type: 
  Country: None (occurrence: None)
  Receive Date: 20110422
  Receipt Date: 20110419
  Transmission Date: 20111010
  Serious: Yes (Other)
  Sender: FDA-Public Use
  Company Number: GB-ROCHE-772589

PATIENT
  Age: 48 Year
  Sex: Male

DRUGS (5)
  1. PREDNISOLONE [Suspect]
     Route: 065
  2. CELLCEPT [Suspect]
     Route: 065
  3. METHYLPREDNISOLONE [Suspect]
     Route: 065
  4. CYCLOSPORINE [Suspect]
     Route: 065
  5. ANTI-THYMOCYTE GLOBULIN NOS [Suspect]
     Route: 065

REACTIONS (2)
  - AORTIC DISSECTION [None]
  - CYTOMEGALOVIRUS INFECTION [None]
